FAERS Safety Report 5616733-5 (Version None)
Quarter: 2008Q1

REPORT INFORMATION
  Report Type: 
  Country: None (occurrence: None)
  Receive Date: 20080114
  Receipt Date: 20070425
  Transmission Date: 20080703
  Serious: Yes (Other)
  Sender: FDA-Public Use
  Company Number: A03200702741

PATIENT
  Age: 57 Year
  Sex: Female

DRUGS (2)
  1. PLAVIX [Suspect]
     Indication: TRANSIENT ISCHAEMIC ATTACK
     Dosage: 75 MG QD - ORAL
     Route: 048
     Dates: start: 20070401, end: 20070418
  2. ACETYLSALICYLIC ACID SRT [Concomitant]

REACTIONS (3)
  - ARTHRITIS [None]
  - CONTUSION [None]
  - URTICARIA [None]
